FAERS Safety Report 9025597 (Version 2)
Quarter: 2013Q4

REPORT INFORMATION
  Report Type: Spontaneous
  Country: GR (occurrence: GR)
  Receive Date: 20130123
  Receipt Date: 20131129
  Transmission Date: 20140711
  Serious: Yes (Death, Hospitalization)
  Sender: FDA-Public Use
  Company Number: GR-B.I. PHARMACEUTICALS,INC./RIDGEFIELD-2013-BI-01268GB

PATIENT
  Age: 88 Year
  Sex: Female

DRUGS (7)
  1. PRADAXA [Suspect]
     Indication: ATRIAL FIBRILLATION
     Dosage: 220 MG
     Route: 048
  2. PRADAXA [Suspect]
     Indication: THROMBOSIS PROPHYLAXIS
     Dosage: 150 MG
     Route: 048
     Dates: start: 201212, end: 201212
  3. PRADAXA [Suspect]
     Indication: HIP SURGERY
  4. PREZOLON / PREDNISOLONE [Concomitant]
     Indication: ASTHMA
     Dosage: 5 MG
     Route: 048
     Dates: end: 20130107
  5. AEROLIN / SALBUTAMOL [Concomitant]
     Indication: ASTHMA
     Route: 055
     Dates: end: 20130107
  6. ZANTAC / RANITIDINE HYDROCHLORIDE [Concomitant]
     Indication: ANTACID THERAPY
     Dates: start: 201212, end: 20130107
  7. UNSPECIFIED ANTIINFLAMMATORY DRUGS [Concomitant]
     Indication: PAIN
     Dates: start: 201212, end: 20130107

REACTIONS (2)
  - Gastrointestinal haemorrhage [Fatal]
  - Melaena [Fatal]
